FAERS Safety Report 24684011 (Version 2)
Quarter: 2024Q4

REPORT INFORMATION
  Report Type: Report from Study
  Country: US (occurrence: US)
  Receive Date: 20241202
  Receipt Date: 20241213
  Transmission Date: 20250115
  Serious: Yes (Hospitalization)
  Sender: ROCHE
  Company Number: US-ROCHE-10000138538

PATIENT
  Age: 60 Year
  Sex: Female

DRUGS (8)
  1. OCRELIZUMAB [Suspect]
     Active Substance: OCRELIZUMAB
     Indication: Multiple sclerosis
     Dosage: SUBSEQUENT DOSE ON 15-JAN-2020
     Route: 042
     Dates: start: 20191231
  2. OCRELIZUMAB [Suspect]
     Active Substance: OCRELIZUMAB
     Route: 042
     Dates: start: 20200715
  3. METOPROLOL [Concomitant]
     Active Substance: METOPROLOL
     Dates: start: 20230308
  4. VITAMIN D [Concomitant]
     Active Substance: VITAMIN D NOS
  5. AZITHROMYCIN [Concomitant]
     Active Substance: AZITHROMYCIN
     Dates: start: 20240811, end: 20240924
  6. ATOVAQUONE [Concomitant]
     Active Substance: ATOVAQUONE
     Dates: start: 20240811, end: 20240924
  7. CLINDAMYCIN [Concomitant]
     Active Substance: CLINDAMYCIN
     Dates: start: 20240811, end: 20240826
  8. DOXYCYCLINE [Concomitant]
     Active Substance: DOXYCYCLINE
     Dates: start: 20240811, end: 20240818

REACTIONS (1)
  - Anaemia [Recovered/Resolved]

NARRATIVE: CASE EVENT DATE: 20240904
